FAERS Safety Report 8522766-1 (Version None)
Quarter: 2012Q3

REPORT INFORMATION
  Report Type: 
  Country: None (occurrence: None)
  Receive Date: 20120719
  Receipt Date: 20120710
  Transmission Date: 20120928
  Serious: Yes (Other)
  Sender: FDA-Public Use
  Company Number: JP-GILEAD-2012-0058164

PATIENT
  Age: 82 Year
  Sex: Female

DRUGS (4)
  1. AMBRISENTAN [Suspect]
     Indication: PULMONARY HYPERTENSION
     Dosage: 2.5MG PER DAY
     Route: 048
     Dates: start: 20120605
  2. WARFARIN SODIUM [Concomitant]
     Route: 048
  3. PLAVIX [Concomitant]
     Route: 048
  4. ASPIRIN [Concomitant]
     Route: 048

REACTIONS (1)
  - HEPATIC FUNCTION ABNORMAL [None]
